FAERS Safety Report 17828106 (Version 7)
Quarter: 2022Q1

REPORT INFORMATION
  Report Type: Report from Study
  Country: FR (occurrence: None)
  Receive Date: 20200527
  Receipt Date: 20220117
  Transmission Date: 20220423
  Serious: Yes (Other)
  Sender: FDA-Public Use
  Company Number: FR-ROCHE-2606235

PATIENT
  Age: 72 Year
  Sex: Female

DRUGS (5)
  1. ATEZOLIZUMAB [Suspect]
     Active Substance: ATEZOLIZUMAB
     Indication: Ovarian cancer
     Dosage: THE FIRST DOSE OF ATEZOLIZUMAB WAS ADMINISTERED ON 13/AUG/2019?LAST DOSE OF BLINDED ATEZOLIZUMAB ADM
     Route: 041
     Dates: start: 20190813, end: 20200427
  2. ATEZOLIZUMAB [Suspect]
     Active Substance: ATEZOLIZUMAB
     Dosage: THE FIRST DOSE OF ATEZOLIZUMAB WAS ADMINISTERED ON 13/AUG/2019?THE DOSE OF ATEZOLIZUMAB WAS REINTROD
     Route: 041
     Dates: start: 20200608, end: 20200902
  3. ATEZOLIZUMAB [Suspect]
     Active Substance: ATEZOLIZUMAB
     Dosage: ON 20-JUL-2020, THE PATIENT RECEIVED LAST DOSE OF ATEZOLIZUMAB (1200 MG) BEFORE THE EVENT.
     Route: 041
     Dates: start: 20190813, end: 20200720
  4. BEVACIZUMAB [Suspect]
     Active Substance: BEVACIZUMAB
     Indication: Ovarian cancer
     Dosage: THE FIRST DOSE OF BEVACIZUMAB WAS ADMINISTERED ON 13/AUG/2019?LAST DOSE OF BEVACIZUMAB ADMINISTERED
     Route: 042
     Dates: start: 20190813, end: 20200427
  5. ATORVASTATIN [Concomitant]
     Active Substance: ATORVASTATIN
     Indication: Product used for unknown indication
     Route: 065

REACTIONS (2)
  - Aspartate aminotransferase increased [Recovered/Resolved]
  - Transaminases increased [Recovered/Resolved]

NARRATIVE: CASE EVENT DATE: 20200515
